FAERS Safety Report 13893574 (Version 4)
Quarter: 2017Q4

REPORT INFORMATION
  Report Type: Spontaneous
  Country: JP (occurrence: JP)
  Receive Date: 20170822
  Receipt Date: 20171121
  Transmission Date: 20180320
  Serious: Yes (Death, Other)
  Sender: FDA-Public Use
  Company Number: JP-009507513-1708JPN000068J

PATIENT
  Age: 72 Year
  Sex: Female
  Weight: 55 kg

DRUGS (1)
  1. KEYTRUDA [Suspect]
     Active Substance: PEMBROLIZUMAB
     Indication: LUNG ADENOCARCINOMA
     Dosage: 200 MG, Q3W
     Route: 041
     Dates: start: 20170519, end: 20170613

REACTIONS (2)
  - Thyroid disorder [Recovering/Resolving]
  - Malignant neoplasm progression [Fatal]

NARRATIVE: CASE EVENT DATE: 20170613
